FAERS Safety Report 24879525 (Version 2)
Quarter: 2025Q1

REPORT INFORMATION
  Report Type: Spontaneous
  Country: US (occurrence: US)
  Receive Date: 20250123
  Receipt Date: 20250203
  Transmission Date: 20250409
  Serious: No
  Sender: SANOFI AVENTIS
  Company Number: US-SA-2025SA020825

PATIENT
  Age: 63 Year
  Sex: Female

DRUGS (3)
  1. DUPIXENT [Suspect]
     Active Substance: DUPILUMAB
     Indication: Transient acantholytic dermatosis
     Dosage: 300 MG, QOW
     Route: 058
     Dates: start: 202412
  2. DUPIXENT [Suspect]
     Active Substance: DUPILUMAB
     Indication: Urticaria
  3. DUPIXENT [Suspect]
     Active Substance: DUPILUMAB
     Indication: Eczema

REACTIONS (6)
  - Pruritus [Recovered/Resolved]
  - Rash [Recovered/Resolved]
  - Injection site pain [Recovered/Resolved]
  - Off label use [Unknown]
  - Accidental exposure to product [Unknown]
  - Exposure via skin contact [Unknown]

NARRATIVE: CASE EVENT DATE: 20241201
